FAERS Safety Report 24561302 (Version 1)
Quarter: 2024Q4

REPORT INFORMATION
  Report Type: Spontaneous
  Country: US (occurrence: None)
  Receive Date: 20241029
  Receipt Date: 20241029
  Transmission Date: 20250115
  Serious: Yes (Other)
  Sender: Public
  Company Number: None

PATIENT
  Age: 60 Year
  Sex: Female
  Weight: 72 kg

DRUGS (6)
  1. REPATHA [Suspect]
     Active Substance: EVOLOCUMAB
     Indication: Cardiac disorder
     Dosage: FREQUENCY : EVERY OTHER WEEK;?
     Route: 030
     Dates: start: 20240503, end: 20241015
  2. SYNTHROID [Concomitant]
     Active Substance: LEVOTHYROXINE SODIUM
  3. METOPROLOL [Concomitant]
     Active Substance: METOPROLOL
  4. VALSARTAN [Concomitant]
     Active Substance: VALSARTAN
  5. ATORVASTATIN [Concomitant]
     Active Substance: ATORVASTATIN
  6. CLOPIDOGREL [Concomitant]
     Active Substance: CLOPIDOGREL BISULFATE

REACTIONS (6)
  - Swelling face [None]
  - Facial pain [None]
  - Headache [None]
  - Ear pain [None]
  - Ear swelling [None]
  - Therapy cessation [None]

NARRATIVE: CASE EVENT DATE: 20241018
